FAERS Safety Report 14213050 (Version 1)
Quarter: 2017Q4

REPORT INFORMATION
  Report Type: Spontaneous
  Country: FR (occurrence: FR)
  Receive Date: 20171122
  Receipt Date: 20171122
  Transmission Date: 20180321
  Serious: Yes (Other)
  Sender: FDA-Public Use
  Company Number: FR-MERCK KGAA-2034837

PATIENT
  Age: 67 Year
  Sex: Female

DRUGS (2)
  1. NOVOTHYROX [Suspect]
     Active Substance: LEVOTHYROXINE SODIUM
  2. NOVOTHYROX [Suspect]
     Active Substance: LEVOTHYROXINE SODIUM
     Indication: POST PROCEDURAL HYPOTHYROIDISM

REACTIONS (8)
  - Headache [None]
  - Hyperthyroidism [None]
  - Blood pressure increased [None]
  - Palpitations [None]
  - Insomnia [None]
  - Blood thyroid stimulating hormone decreased [None]
  - Stress [None]
  - Anxiety [None]

NARRATIVE: CASE EVENT DATE: 2017
